FAERS Safety Report 9731417 (Version 1)
Quarter: 2013Q4

REPORT INFORMATION
  Report Type: Spontaneous
  Country: US (occurrence: US)
  Receive Date: 20131203
  Receipt Date: 20131203
  Transmission Date: 20140711
  Serious: No
  Sender: FDA-Public Use
  Company Number: US-BAYER-2013-145142

PATIENT
  Age: 40 Year
  Sex: Male

DRUGS (2)
  1. GADAVIST [Suspect]
     Indication: INVESTIGATION
     Dosage: 14 ML, ONCE
     Dates: start: 20131123, end: 20131123
  2. GADAVIST [Suspect]
     Indication: NERVOUS SYSTEM DISORDER

REACTIONS (2)
  - Pruritus [Recovered/Resolved]
  - Urticaria [Recovered/Resolved]
